FAERS Safety Report 7706437-7 (Version None)
Quarter: 2011Q3

REPORT INFORMATION
  Report Type: 
  Country: None (occurrence: None)
  Receive Date: 20110824
  Receipt Date: 20110812
  Transmission Date: 20111222
  Serious: Yes (Hospitalization)
  Sender: FDA-Public Use
  Company Number: KR-PFIZER INC-2011186571

PATIENT
  Age: 58 Year
  Sex: Male

DRUGS (2)
  1. SUNITINIB MALATE [Suspect]
     Dosage: 37.5 MG, UNK
     Route: 048
  2. SUNITINIB MALATE [Suspect]
     Indication: RENAL CELL CARCINOMA
     Dosage: 50 MG, 1X/DAY
     Route: 048
     Dates: start: 20110525

REACTIONS (1)
  - TREMOR [None]
